FAERS Safety Report 18031802 (Version 1)
Quarter: 2020Q3

REPORT INFORMATION
  Report Type: Report from Study
  Country: US (occurrence: US)
  Receive Date: 20200716
  Receipt Date: 20200716
  Transmission Date: 20201103
  Serious: Yes (Other)
  Sender: FDA-Public Use
  Company Number: US-ASTRAZENECA-2020SE49684

PATIENT
  Sex: Female

DRUGS (1)
  1. LYNPARZA [Suspect]
     Active Substance: OLAPARIB
     Indication: OVARIAN CANCER
     Route: 048
     Dates: start: 20200402

REACTIONS (15)
  - Platelet count decreased [Unknown]
  - Red blood cell count decreased [Unknown]
  - Diarrhoea [Recovering/Resolving]
  - Myalgia [Unknown]
  - Product dose omission issue [Unknown]
  - Headache [Unknown]
  - Rhinorrhoea [Unknown]
  - Arthralgia [Unknown]
  - Blood count abnormal [Unknown]
  - Asthenia [Unknown]
  - Nausea [Unknown]
  - Blood glucose increased [Unknown]
  - Fatigue [Not Recovered/Not Resolved]
  - Decreased appetite [Unknown]
  - Hypersomnia [Unknown]
